FAERS Safety Report 19068580 (Version 1)
Quarter: 2021Q1

REPORT INFORMATION
  Report Type: Spontaneous
  Country: US (occurrence: US)
  Receive Date: 20210327
  Receipt Date: 20210327
  Transmission Date: 20210420
  Serious: Yes (Hospitalization, Other)
  Sender: FDA-Public Use
  Company Number: None

PATIENT
  Age: 83 Year
  Sex: Female

DRUGS (2)
  1. RIVASTIGMINE. [Concomitant]
     Active Substance: RIVASTIGMINE
     Dates: start: 20210120, end: 20210315
  2. RIVASTIGMINE. [Suspect]
     Active Substance: RIVASTIGMINE
     Indication: DEMENTIA ALZHEIMER^S TYPE
     Dates: start: 20210124, end: 20210324

REACTIONS (3)
  - Hallucination [None]
  - Confusional state [None]
  - Psychotic disorder [None]

NARRATIVE: CASE EVENT DATE: 20210324
